FAERS Safety Report 5202448-4 (Version None)
Quarter: 2007Q1

REPORT INFORMATION
  Report Type: 
  Country: None (occurrence: None)
  Receive Date: 20070109
  Receipt Date: 20070104
  Transmission Date: 20070707
  Serious: Yes (Death, Hospitalization, Other)
  Sender: FDA-Public Use
  Company Number: IT-BRISTOL-MYERS SQUIBB COMPANY-13625629

PATIENT
  Age: 5 Year
  Sex: Female

DRUGS (2)
  1. DASATINIB [Suspect]
     Indication: LEUKAEMIA
     Route: 048
     Dates: start: 20061031
  2. PREDNISONE TAB [Concomitant]
     Dates: start: 20060925

REACTIONS (3)
  - LOWER GASTROINTESTINAL HAEMORRHAGE [None]
  - MALIGNANT NEOPLASM PROGRESSION [None]
  - UPPER GASTROINTESTINAL HAEMORRHAGE [None]
